FAERS Safety Report 19514932 (Version 1)
Quarter: 2021Q3

REPORT INFORMATION
  Report Type: Spontaneous
  Country: NL (occurrence: NL)
  Receive Date: 20210709
  Receipt Date: 20210709
  Transmission Date: 20211014
  Serious: Yes (Death, Other)
  Sender: FDA-Public Use
  Company Number: NL-TAKEDA-2021TUS042606

PATIENT
  Age: 64 Year
  Sex: Male

DRUGS (2)
  1. HUMAN NORMAL IMMUNOGLOBULIN [Suspect]
     Active Substance: HUMAN IMMUNOGLOBULIN G
     Dosage: 0.8 GRAM PER KILOGRAM
     Route: 042
  2. HUMAN NORMAL IMMUNOGLOBULIN [Suspect]
     Active Substance: HUMAN IMMUNOGLOBULIN G
     Indication: GUILLAIN-BARRE SYNDROME
     Dosage: 2 GRAM PER KILOGRAM
     Route: 042

REACTIONS (3)
  - Pulmonary embolism [Fatal]
  - Myocardial infarction [Fatal]
  - Drug ineffective [Unknown]
